FAERS Safety Report 9235206 (Version 1)
Quarter: 2013Q2

REPORT INFORMATION
  Report Type: Other
  Country: DE (occurrence: DE)
  Receive Date: 20130417
  Receipt Date: 20130417
  Transmission Date: 20140414
  Serious: Yes (Other)
  Sender: FDA-Public Use
  Company Number: DE-SUN PHARMACEUTICAL INDUSTRIES LTD-2013SUN00490

PATIENT
  Sex: 0

DRUGS (1)
  1. LETROZOL SU N 2.5 MG [Suspect]
     Indication: BREAST CANCER
     Dosage: 2.5 MG, OD
     Route: 048
     Dates: start: 20120214

REACTIONS (2)
  - Respiratory distress [Not Recovered/Not Resolved]
  - Malaise [Not Recovered/Not Resolved]
